FAERS Safety Report 7189871-6 (Version None)
Quarter: 2010Q4

REPORT INFORMATION
  Report Type: 
  Country: None (occurrence: None)
  Receive Date: 20101223
  Receipt Date: 20101213
  Transmission Date: 20110411
  Serious: Yes (Hospitalization)
  Sender: FDA-Public Use
  Company Number: US-ELI_LILLY_AND_COMPANY-US201010003231

PATIENT
  Sex: Female

DRUGS (17)
  1. FORTEO [Suspect]
     Indication: OSTEOPOROSIS
     Dosage: 20 UG, DAILY (1/D)
     Dates: start: 20100618
  2. SPIRIVA [Concomitant]
  3. COMBIVENT [Concomitant]
  4. MOBIC [Concomitant]
  5. LORATADINE [Concomitant]
  6. SINGULAIR [Concomitant]
  7. PROTONIX [Concomitant]
  8. DIOVAN [Concomitant]
  9. TRAMADOL [Concomitant]
  10. CARTIA XT [Concomitant]
  11. PREDNISONE [Concomitant]
  12. ALBUTEROL SULFATE AND IPRATROPIUM BROMIDE [Concomitant]
  13. ASPIRIN [Concomitant]
  14. CITRACAL [Concomitant]
  15. VITAMIN TAB [Concomitant]
  16. CALCIUM [Concomitant]
  17. IRON [Concomitant]
     Indication: ANAEMIA

REACTIONS (2)
  - KNEE ARTHROPLASTY [None]
  - MUSCLE SPASMS [None]
